FAERS Safety Report 4722348-3 (Version None)
Quarter: 2005Q3

REPORT INFORMATION
  Report Type: 
  Country: None (occurrence: None)
  Receive Date: 20050722
  Receipt Date: 20050304
  Transmission Date: 20060218
  Serious: No
  Sender: FDA-Public Use
  Company Number: US-GLAXOSMITHKLINE-A0548405A

PATIENT
  Age: 71 Year
  Sex: Male

DRUGS (9)
  1. AVANDIA [Suspect]
     Dosage: 4MG TWICE PER DAY
     Route: 048
  2. DIAVAN [Concomitant]
  3. TRICOR [Concomitant]
  4. NORVASC [Concomitant]
  5. ULCER MEDICATION [Concomitant]
  6. PROTONIX [Concomitant]
  7. VITAMIN E [Concomitant]
  8. CENTRUM [Concomitant]
  9. LIPITOR [Concomitant]

REACTIONS (1)
  - BLOOD GLUCOSE INCREASED [None]
